FAERS Safety Report 11199962 (Version 2)
Quarter: 2015Q2

REPORT INFORMATION
  Report Type: Spontaneous
  Country: CA (occurrence: CA)
  Receive Date: 20150618
  Receipt Date: 20150624
  Transmission Date: 20150821
  Serious: Yes (Other)
  Sender: FDA-Public Use
  Company Number: CA-SA-2015SA082864

PATIENT
  Sex: Female

DRUGS (1)
  1. ARAVA [Suspect]
     Active Substance: LEFLUNOMIDE
     Indication: RHEUMATOID ARTHRITIS
     Route: 065

REACTIONS (10)
  - Swelling [Unknown]
  - Pain [Unknown]
  - Abasia [Unknown]
  - Foot deformity [Unknown]
  - Rotator cuff syndrome [Unknown]
  - Bursitis [Unknown]
  - Nausea [Unknown]
  - Hand deformity [Unknown]
  - Abdominal discomfort [Unknown]
  - Disease progression [Unknown]
